FAERS Safety Report 23091241 (Version 1)
Quarter: 2023Q4

REPORT INFORMATION
  Report Type: Spontaneous
  Country: US (occurrence: None)
  Receive Date: 20231020
  Receipt Date: 20231020
  Transmission Date: 20240110
  Serious: Yes (Other)
  Sender: FDA-Public Use
  Company Number: 2023A233545

PATIENT
  Age: 57 Year
  Sex: Male

DRUGS (3)
  1. QUETIAPINE [Suspect]
     Active Substance: QUETIAPINE
     Indication: Psychotic disorder due to a general medical condition
     Dosage: INCREASED TITRATION TO 150 MG
     Route: 048
  2. OLANZAPINE [Concomitant]
     Active Substance: OLANZAPINE
     Indication: Psychotic disorder due to a general medical condition
     Dosage: 10.0MG UNKNOWN
  3. RISPERIDONE [Concomitant]
     Active Substance: RISPERIDONE
     Indication: Psychotic disorder due to a general medical condition
     Dosage: 10.0MG UNKNOWN

REACTIONS (7)
  - Motor dysfunction [Unknown]
  - Delusion [Unknown]
  - Hallucination, visual [Unknown]
  - Hallucination, auditory [Unknown]
  - Hallucination, olfactory [Unknown]
  - Off label use [Unknown]
  - Drug ineffective for unapproved indication [Unknown]
